FAERS Safety Report 21983648 (Version 1)
Quarter: 2023Q1

REPORT INFORMATION
  Report Type: Spontaneous
  Country: CA (occurrence: CA)
  Receive Date: 20230213
  Receipt Date: 20230213
  Transmission Date: 20230418
  Serious: Yes (Other)
  Sender: FDA-Public Use
  Company Number: CA-002147023-NVSC2023CA027742

PATIENT
  Age: 69 Year
  Sex: Male

DRUGS (1)
  1. FLUMAZENIL [Suspect]
     Active Substance: FLUMAZENIL
     Indication: Endoscopy upper gastrointestinal tract
     Dosage: 1 DOSAGE FORM
     Route: 041

REACTIONS (1)
  - Unresponsive to stimuli [Unknown]
